FAERS Safety Report 16379035 (Version 1)
Quarter: 2019Q2

REPORT INFORMATION
  Report Type: Spontaneous
  Country: DE (occurrence: DE)
  Receive Date: 20190531
  Receipt Date: 20190531
  Transmission Date: 20190711
  Serious: Yes (Hospitalization, Other)
  Sender: FDA-Public Use
  Company Number: DE-BAUSCH-BL-2019-015581

PATIENT
  Age: 59 Year
  Sex: Male
  Weight: 86 kg

DRUGS (21)
  1. PREDNISOLON [Suspect]
     Active Substance: PREDNISOLONE
     Route: 065
     Dates: start: 20181227, end: 20181229
  2. MEPOLIZUMAB [Suspect]
     Active Substance: MEPOLIZUMAB
     Route: 058
     Dates: start: 20181122
  3. SPIRIVA RESPIMAT [Suspect]
     Active Substance: TIOTROPIUM BROMIDE
     Indication: ASTHMA
     Route: 065
     Dates: start: 2018
  4. PREDNISOLON [Suspect]
     Active Substance: PREDNISOLONE
     Route: 065
     Dates: start: 20181214, end: 20181220
  5. PREDNISOLON [Suspect]
     Active Substance: PREDNISOLONE
     Indication: PRODUCT USED FOR UNKNOWN INDICATION
     Route: 065
     Dates: start: 20181015, end: 20181019
  6. PREDNISOLON [Suspect]
     Active Substance: PREDNISOLONE
     Route: 065
     Dates: start: 20181221, end: 20181223
  7. PREDNISOLON [Suspect]
     Active Substance: PREDNISOLONE
     Route: 065
     Dates: start: 20181224, end: 20181226
  8. PREDNISOLON [Suspect]
     Active Substance: PREDNISOLONE
     Route: 065
     Dates: start: 20181230
  9. BECLOMETHASONE PLUS FORMOTEROL [Suspect]
     Active Substance: BECLOMETHASONE\FORMOTEROL
     Indication: PRODUCT USED FOR UNKNOWN INDICATION
     Route: 065
     Dates: start: 20180921
  10. MEPOLIZUMAB [Suspect]
     Active Substance: MEPOLIZUMAB
     Route: 058
     Dates: start: 20180927
  11. PIROXICAM. [Suspect]
     Active Substance: PIROXICAM
     Indication: PRODUCT USED FOR UNKNOWN INDICATION
     Route: 065
     Dates: start: 20180921
  12. MEPOLIZUMAB [Suspect]
     Active Substance: MEPOLIZUMAB
     Route: 058
     Dates: start: 20181220
  13. MEPOLIZUMAB [Suspect]
     Active Substance: MEPOLIZUMAB
     Route: 058
     Dates: start: 20181025
  14. MONTELUKAST [Suspect]
     Active Substance: MONTELUKAST SODIUM
     Indication: PRODUCT USED FOR UNKNOWN INDICATION
     Route: 065
     Dates: start: 2018, end: 20181214
  15. MONTELUKAST [Suspect]
     Active Substance: MONTELUKAST SODIUM
     Route: 065
     Dates: start: 20181220
  16. MEPOLIZUMAB [Suspect]
     Active Substance: MEPOLIZUMAB
     Indication: ASTHMA
     Route: 058
     Dates: start: 20190314
  17. MEPOLIZUMAB [Suspect]
     Active Substance: MEPOLIZUMAB
     Route: 058
     Dates: start: 20190117
  18. PREDNISOLON [Suspect]
     Active Substance: PREDNISOLONE
     Route: 065
     Dates: start: 20181020, end: 20181024
  19. PREDNISOLON [Suspect]
     Active Substance: PREDNISOLONE
     Route: 065
     Dates: start: 20181025, end: 20181029
  20. MEPOLIZUMAB [Suspect]
     Active Substance: MEPOLIZUMAB
     Route: 058
     Dates: start: 20190214
  21. COMBIPRASAL [Suspect]
     Active Substance: ALBUTEROL SULFATE\IPRATROPIUM BROMIDE
     Indication: ASTHMA
     Route: 065
     Dates: start: 2018, end: 20190108

REACTIONS (1)
  - Myocardial infarction [Recovered/Resolved]

NARRATIVE: CASE EVENT DATE: 20190308
